FAERS Safety Report 20778906 (Version 1)
Quarter: 2022Q2

REPORT INFORMATION
  Report Type: Spontaneous
  Country: IN (occurrence: None)
  Receive Date: 20220503
  Receipt Date: 20220503
  Transmission Date: 20220721
  Serious: Yes (Other)
  Sender: FDA-Public Use
  Company Number: IN-Merck Healthcare KGaA-9315956

PATIENT
  Age: 67 Year
  Sex: Male

DRUGS (2)
  1. BAVENCIO [Suspect]
     Active Substance: AVELUMAB
     Indication: Product used for unknown indication
  2. AXITINIB [Suspect]
     Active Substance: AXITINIB
     Indication: Product used for unknown indication

REACTIONS (1)
  - Haematemesis [Unknown]
